FAERS Safety Report 8845081 (Version 2)
Quarter: 2012Q4

REPORT INFORMATION
  Report Type: 
  Country: IN (occurrence: IN)
  Receive Date: 20121017
  Receipt Date: 20121116
  Transmission Date: 20130627
  Serious: Yes (Hospitalization)
  Sender: FDA-Public Use
  Company Number: IN-BRISTOL-MYERS SQUIBB COMPANY-17019134

PATIENT
  Age: 30 Year
  Sex: Female
  Weight: 68 kg

DRUGS (1)
  1. ORENCIA FOR INJ [Suspect]
     Indication: RHEUMATOID ARTHRITIS
     Dosage: Discontinued after 3rd dose
     Route: 042
     Dates: start: 20120723, end: 20120823

REACTIONS (2)
  - Fall [Unknown]
  - Drug ineffective [Unknown]
